FAERS Safety Report 8614378-6 (Version None)
Quarter: 2012Q3

REPORT INFORMATION
  Report Type: 
  Country: None (occurrence: None)
  Receive Date: 20120823
  Receipt Date: 20120821
  Transmission Date: 20120928
  Serious: Yes (Life-Threatening)
  Sender: FDA-Public Use
  Company Number: CA-BAYER-2012-086036

PATIENT
  Age: 41 Year
  Sex: Male
  Weight: 100 kg

DRUGS (1)
  1. AVELOX [Suspect]
     Dosage: 400 MG, ONCE
     Route: 048

REACTIONS (8)
  - DIZZINESS [None]
  - LOSS OF CONSCIOUSNESS [None]
  - SKIN BURNING SENSATION [None]
  - ANAPHYLACTIC REACTION [None]
  - ABDOMINAL PAIN [None]
  - ARTHRALGIA [None]
  - VOMITING [None]
  - HYPOAESTHESIA [None]
